FAERS Safety Report 17491688 (Version 1)
Quarter: 2020Q1

REPORT INFORMATION
  Report Type: Other
  Country: AT (occurrence: AT)
  Receive Date: 20200304
  Receipt Date: 20200304
  Transmission Date: 20200409
  Serious: Yes (Hospitalization)
  Sender: FDA-Public Use
  Company Number: AT-AJANTA PHARMA USA INC.-2081251

PATIENT
  Age: 59 Year
  Sex: Female

DRUGS (4)
  1. CANDESARTAN. [Suspect]
     Active Substance: CANDESARTAN
  2. BISOPROLOL FUMARATE. [Suspect]
     Active Substance: BISOPROLOL FUMARATE
  3. DULOXETINE. [Suspect]
     Active Substance: DULOXETINE
  4. ARIPIPRAZOLE (ANDA 206174) [Suspect]
     Active Substance: ARIPIPRAZOLE
     Indication: DEPRESSION

REACTIONS (3)
  - Drug interaction [Recovered/Resolved]
  - Myalgia [Recovered/Resolved]
  - Ophthalmoplegia [Recovered/Resolved]
